FAERS Safety Report 6597779-X (Version None)
Quarter: 2010Q1

REPORT INFORMATION
  Report Type: 
  Country: None (occurrence: None)
  Receive Date: 20100216
  Receipt Date: 20100208
  Transmission Date: 20100710
  Serious: Yes (Hospitalization)
  Sender: FDA-Public Use
  Company Number: 2010SP002765

PATIENT
  Age: 67 Year
  Sex: Male
  Weight: 70 kg

DRUGS (5)
  1. TEMOZOLOMIDE [Suspect]
     Indication: METASTATIC MALIGNANT MELANOMA
     Dosage: 270 MG;QD;PO; 360 MG;QD
     Route: 048
     Dates: start: 20091203, end: 20091207
  2. TEMOZOLOMIDE [Suspect]
     Indication: METASTATIC MALIGNANT MELANOMA
     Dosage: 270 MG;QD;PO; 360 MG;QD
     Route: 048
     Dates: start: 20091221
  3. PLACEBO (PLACEBO) [Suspect]
     Indication: METASTATIC MALIGNANT MELANOMA
     Dosage: 2 DF;QD;PO
     Route: 048
     Dates: start: 20091203, end: 20091209
  4. PLACEBO (PLACEBO) [Suspect]
     Indication: METASTATIC MALIGNANT MELANOMA
     Dosage: 2 DF;QD;PO
     Route: 048
     Dates: start: 20091231
  5. TRAMADOL HCL [Concomitant]

REACTIONS (4)
  - LIP SWELLING [None]
  - NAUSEA [None]
  - SWOLLEN TONGUE [None]
  - VOMITING [None]
